FAERS Safety Report 16516595 (Version 1)
Quarter: 2019Q3

REPORT INFORMATION
  Report Type: Spontaneous
  Country: US (occurrence: US)
  Receive Date: 20190702
  Receipt Date: 20190702
  Transmission Date: 20191004
  Serious: No
  Sender: FDA-Public Use
  Company Number: None

PATIENT
  Age: 15 Year
  Sex: Female
  Weight: 45 kg

DRUGS (1)
  1. FLUOXETINE [Suspect]
     Active Substance: FLUOXETINE HYDROCHLORIDE
     Indication: DEPRESSION
     Dosage: ?          QUANTITY:1 TABLET(S);?
     Route: 048
     Dates: start: 20190515, end: 20190702

REACTIONS (6)
  - Muscle twitching [None]
  - Nausea [None]
  - Syncope [None]
  - Fatigue [None]
  - Decreased appetite [None]
  - Fear [None]

NARRATIVE: CASE EVENT DATE: 20190622
